FAERS Safety Report 6617913-2 (Version None)
Quarter: 2010Q1

REPORT INFORMATION
  Report Type: 
  Country: None (occurrence: None)
  Receive Date: 20100308
  Receipt Date: 20100222
  Transmission Date: 20100710
  Serious: Yes (Hospitalization)
  Sender: FDA-Public Use
  Company Number: NL-MEDIMMUNE-MEDI-0010647

PATIENT
  Sex: Female
  Weight: 7.1 kg

DRUGS (1)
  1. SYNAGIS [Suspect]
     Dates: start: 20090907

REACTIONS (4)
  - DYSPNOEA [None]
  - INCREASED UPPER AIRWAY SECRETION [None]
  - RESPIRATORY SYNCYTIAL VIRUS INFECTION [None]
  - VOMITING [None]
